FAERS Safety Report 5629812-3 (Version None)
Quarter: 2008Q1

REPORT INFORMATION
  Report Type: 
  Country: None (occurrence: None)
  Receive Date: 20080218
  Receipt Date: 20080213
  Transmission Date: 20080703
  Serious: Yes (Death)
  Sender: FDA-Public Use
  Company Number: PHNU2008SI00964

PATIENT
  Age: 55 Year
  Sex: Male

DRUGS (1)
  1. LESCOL XL [Suspect]
     Indication: DYSLIPIDAEMIA
     Route: 048
     Dates: start: 20070731

REACTIONS (1)
  - ACUTE MYOCARDIAL INFARCTION [None]
